FAERS Safety Report 8620806-2 (Version None)
Quarter: 2012Q3

REPORT INFORMATION
  Report Type: 
  Country: None (occurrence: None)
  Receive Date: 20120816
  Receipt Date: 20120816
  Transmission Date: 20120928
  Serious: Yes (Life-Threatening, Hospitalization, Other)
  Sender: FDA-Public Use
  Company Number: None

PATIENT
  Age: 45 Year
  Sex: Female
  Weight: 90.2658 kg

DRUGS (2)
  1. INFED [Suspect]
     Indication: ANAEMIA HAEMOLYTIC AUTOIMMUNE
     Dosage: 68 G/DLL, BIWEEKLY, IV DRIP
     Route: 041
     Dates: start: 20110103, end: 20111230
  2. INFED [Suspect]
     Indication: THALASSAEMIA
     Dosage: 68 G/DLL, BIWEEKLY, IV DRIP
     Route: 041
     Dates: start: 20110103, end: 20111230

REACTIONS (4)
  - UTERINE LEIOMYOMA [None]
  - HAEMOGLOBIN DECREASED [None]
  - VAGINAL HAEMORRHAGE [None]
  - ENDOMETRIAL HYPERTROPHY [None]
